FAERS Safety Report 13718377 (Version 2)
Quarter: 2018Q3

REPORT INFORMATION
  Report Type: Report from Study
  Country: KR (occurrence: KR)
  Receive Date: 20170705
  Receipt Date: 20180731
  Transmission Date: 20181010
  Serious: Yes (Hospitalization)
  Sender: FDA-Public Use
  Company Number: KR-DSJP-DSJ-2017-112206

PATIENT

DRUGS (30)
  1. DIABEX [Concomitant]
     Active Substance: METFORMIN HYDROCHLORIDE
     Indication: DIABETES MELLITUS
     Dosage: 250 MG, BID
     Route: 048
     Dates: start: 20170120, end: 20170316
  2. STILLEN 2X [Concomitant]
     Dosage: 1 DF, QD
     Route: 048
     Dates: start: 20170515
  3. LIVARO V [Concomitant]
     Dosage: 1/40MG, QD
     Route: 048
     Dates: start: 20170515
  4. VASTINAN [Concomitant]
     Active Substance: TRIMETAZIDINE DIHYDROCHLORIDE
     Indication: ANGINA UNSTABLE
     Dosage: 35 MG, BID
     Route: 048
     Dates: start: 20170317, end: 20170413
  5. HERBEN [Concomitant]
     Active Substance: DILTIAZEM HYDROCHLORIDE
     Indication: ATRIAL FIBRILLATION
     Dosage: 10 MG, LOADING
     Route: 042
     Dates: start: 20170616, end: 20170616
  6. EDOXABAN [Suspect]
     Active Substance: EDOXABAN TOSYLATE
     Indication: ATRIAL FIBRILLATION
     Dosage: 60 MG, QD
     Route: 048
     Dates: start: 20170217, end: 20170616
  7. MUCOSTA [Concomitant]
     Active Substance: REBAMIPIDE
     Indication: ABDOMINAL DISCOMFORT
     Dosage: 100 MG, BID
     Route: 048
     Dates: start: 20170120, end: 20170316
  8. ISOKET [Concomitant]
     Active Substance: ISOSORBIDE DINITRATE
     Dosage: 40 MG, BID
     Route: 048
     Dates: start: 20170515, end: 20170611
  9. HERBEN [Concomitant]
     Active Substance: DILTIAZEM HYDROCHLORIDE
     Dosage: 200 MG, MAINTENANCE
     Route: 042
     Dates: start: 20170616, end: 20170619
  10. DOCUSATE SODIUM W/SORBITOL [Concomitant]
     Indication: CHRONIC FATIGUE SYNDROME
     Dosage: 1 DF, QD
     Route: 054
     Dates: start: 20170616, end: 20170616
  11. HERBEN [Concomitant]
     Active Substance: DILTIAZEM HYDROCHLORIDE
     Indication: HYPERTENSION
     Dosage: 90 MG, QD
     Route: 048
     Dates: start: 20170217
  12. LIVARO V [Concomitant]
     Indication: HYPERLIPIDAEMIA
     Dosage: 2/80MG, QD
     Route: 048
     Dates: start: 20170317, end: 20170514
  13. CLOPIDOGREL HYDROGEN SULFATE [Suspect]
     Active Substance: CLOPIDOGREL BISULFATE
     Indication: ANGINA UNSTABLE
     Dosage: 75 MG, QD
     Route: 048
     Dates: start: 20170120, end: 20170413
  14. NEBISTOL [Concomitant]
     Indication: HYPERTENSION
     Dosage: 1.25 MG, QD
     Route: 048
     Dates: start: 20170317
  15. POLYBUTINE [Concomitant]
     Indication: ABDOMINAL DISCOMFORT
     Dosage: 100 MG, BID
     Route: 048
     Dates: start: 20170612
  16. TRITACE [Concomitant]
     Active Substance: RAMIPRIL
     Indication: HYPERTENSION
     Dosage: 5 MG, QD
     Route: 048
     Dates: start: 20170120, end: 20170316
  17. STILLEN 2X [Concomitant]
     Indication: ABDOMINAL DISCOMFORT
     Dosage: 1 DF, BID
     Route: 048
     Dates: start: 20170317, end: 20170514
  18. TRAJENTA [Concomitant]
     Active Substance: LINAGLIPTIN
     Indication: DIABETES MELLITUS
     Dosage: 1 DF, QD
     Route: 048
     Dates: start: 20170317
  19. ASIMA [Concomitant]
     Active Substance: DOXOFYLLINE
     Indication: DYSPNOEA
     Dosage: 400 MG, BID
     Route: 048
     Dates: start: 20170612
  20. FURIX [Concomitant]
     Active Substance: FUROSEMIDE
     Dosage: 40 MG, QD
     Route: 048
     Dates: start: 20170515, end: 20170611
  21. FURIX [Concomitant]
     Active Substance: FUROSEMIDE
     Dosage: 60 MG, QD
     Route: 048
     Dates: start: 20170612
  22. TORSEMIDE. [Concomitant]
     Active Substance: TORSEMIDE
     Indication: HYPERTENSION
     Dosage: 5 MG, QD
     Route: 048
     Dates: start: 20170317, end: 20170611
  23. ASPIRIN. [Suspect]
     Active Substance: ASPIRIN
     Indication: ANGINA UNSTABLE
     Dosage: 100 MG, QD
     Route: 048
     Dates: start: 20170414
  24. SIGMART [Concomitant]
     Active Substance: NICORANDIL
     Indication: ANGINA UNSTABLE
     Dosage: 2.5 MG, BID
     Route: 048
     Dates: start: 20170120, end: 20170316
  25. SIGMART [Concomitant]
     Active Substance: NICORANDIL
     Dosage: 5 MG, BID
     Route: 048
     Dates: start: 20170612
  26. FURIX [Concomitant]
     Active Substance: FUROSEMIDE
     Indication: HYPERTENSION
     Dosage: 40 MG, BID
     Route: 048
     Dates: start: 20170119, end: 20170514
  27. PITAVASTATIN CALCIUM [Concomitant]
     Active Substance: PITAVASTATIN CALCIUM
     Indication: HYPERLIPIDAEMIA
     Dosage: 2 MG, QD
     Route: 048
     Dates: start: 20170120, end: 20170316
  28. SKAD [Concomitant]
     Active Substance: AMLODIPINE MALEATE
     Indication: HYPERTENSION
     Dosage: 5 MG, BID
     Route: 048
     Dates: start: 20170120, end: 20170316
  29. ISOKET [Concomitant]
     Active Substance: ISOSORBIDE DINITRATE
     Indication: ANGINA UNSTABLE
     Dosage: 40 MG, BID
     Route: 048
     Dates: start: 20170217, end: 20170413
  30. MONTELUKAST SODIUM. [Concomitant]
     Active Substance: MONTELUKAST SODIUM
     Indication: DYSPNOEA
     Dosage: 10 MG, QD
     Route: 048
     Dates: start: 20170612

REACTIONS (3)
  - Haematochezia [Recovered/Resolved]
  - Anal abscess [Recovered/Resolved]
  - Acute kidney injury [Recovered/Resolved]

NARRATIVE: CASE EVENT DATE: 20170320
